FAERS Safety Report 24733695 (Version 1)
Quarter: 2024Q4

REPORT INFORMATION
  Report Type: Spontaneous
  Country: FR (occurrence: FR)
  Receive Date: 20241213
  Receipt Date: 20241213
  Transmission Date: 20250115
  Serious: Yes (Hospitalization)
  Sender: WAYLIS THERAPEUTICS
  Company Number: FR-WAYLIS-2024-FR-000209

PATIENT
  Age: 53 Year
  Sex: Male

DRUGS (8)
  1. RABEPRAZOLE SODIUM [Suspect]
     Active Substance: RABEPRAZOLE SODIUM
     Indication: Oesophagitis
     Dosage: DOSE AND FREQUENCY UNKNOWN
     Route: 048
  2. CELLCEPT [Suspect]
     Active Substance: MYCOPHENOLATE MOFETIL
     Dosage: 2.0 GRAM(S) (1 GRAM(S), 1 IN 12 HOUR)
     Route: 048
     Dates: end: 202407
  3. RITUXIMAB [Suspect]
     Active Substance: RITUXIMAB
     Dosage: D1 (DOSE UNKNOWN)
     Route: 042
     Dates: start: 20240625, end: 20240625
  4. BACTRIM [Suspect]
     Active Substance: SULFAMETHOXAZOLE\TRIMETHOPRIM
     Dosage: 1.0 DOSAGE FORM (1 DOSAGE FORM, 1 IN 1 DAY)
     Route: 048
  5. PREDNISONE [Suspect]
     Active Substance: PREDNISONE
     Dosage: 5.0 MILLIGRAM(S) (5 MILLIGRAM(S), 1 IN 1 DAY)
     Route: 048
  6. RAMIPRIL [Suspect]
     Active Substance: RAMIPRIL
     Dosage: 10.0 MILLIGRAM(S) (5 MILLIGRAM(S), 1 IN 12 HOUR)
     Route: 048
     Dates: start: 202407
  7. ISRADIPINE [Suspect]
     Active Substance: ISRADIPINE
     Dosage: 5.0 MILLIGRAM(S) (5 MILLIGRAM(S), 1 IN 1 DAY)
     Route: 048
  8. INNOVAIR [Suspect]
     Active Substance: BECLOMETHASONE DIPROPIONATE\FORMOTEROL
     Dosage: 4.0 DOSAGE FORM (2 DOSAGE FORM, 1 IN 12 HOUR); 100/6 MICROGRAMS/DOSE
     Route: 055

REACTIONS (1)
  - Colitis [Not Recovered/Not Resolved]

NARRATIVE: CASE EVENT DATE: 20240701
